FAERS Safety Report 16370601 (Version 1)
Quarter: 2019Q2

REPORT INFORMATION
  Report Type: Spontaneous
  Country: US (occurrence: US)
  Receive Date: 20190423
  Receipt Date: 20190423
  Transmission Date: 20190711
  Serious: Yes (Hospitalization)
  Sender: FDA-Public Use
  Company Number: None

PATIENT
  Age: 34 Year
  Sex: Male

DRUGS (2)
  1. AMPHETAMINE/DEXTROAMPHETAMINE [Suspect]
     Active Substance: AMPHETAMINE\DEXTROAMPHETAMINE
     Indication: COGNITIVE DISORDER
     Dosage: ?          OTHER DOSE:1/2 TAB;?
     Route: 048
     Dates: start: 20190108, end: 20190211
  2. AMPHETAMINE/DEXTROAMPHETAMINE [Suspect]
     Active Substance: AMPHETAMINE\DEXTROAMPHETAMINE
     Indication: CRANIOCEREBRAL INJURY

REACTIONS (1)
  - Hallucination [None]

NARRATIVE: CASE EVENT DATE: 20190207
